FAERS Safety Report 6573636-X (Version None)
Quarter: 2010Q1

REPORT INFORMATION
  Report Type: 
  Country: None (occurrence: None)
  Receive Date: 20100204
  Receipt Date: 20100204
  Transmission Date: 20100710
  Serious: Yes (Other)
  Sender: FDA-Public Use
  Company Number: None

PATIENT
  Age: 46 Year
  Sex: Female
  Weight: 64 kg

DRUGS (8)
  1. VIMPAT [Suspect]
     Indication: CONVULSION
     Dosage: 150MG BID PO
     Route: 048
  2. TOPAMAX [Suspect]
     Dosage: 75MG TOTAL PO
     Route: 048
  3. CELEXA [Concomitant]
  4. LEVOTHYROXINE SODIUM [Concomitant]
  5. PRILOSEC [Concomitant]
  6. VITAMIN B COMPLEX MULTIVITAMIN [Concomitant]
  7. FLUDROCORTISONE [Concomitant]
  8. HYDROCORTISONE [Concomitant]

REACTIONS (1)
  - PANCYTOPENIA [None]
